FAERS Safety Report 5570714-9 (Version None)
Quarter: 2007Q4

REPORT INFORMATION
  Report Type: 
  Country: None (occurrence: None)
  Receive Date: 20071221
  Receipt Date: 20071213
  Transmission Date: 20080405
  Serious: Yes (Hospitalization)
  Sender: FDA-Public Use
  Company Number: JP-AVENTIS-200713318JP

PATIENT
  Age: 69 Year
  Sex: Female

DRUGS (4)
  1. AMARYL [Suspect]
  2. LIPITOR [Suspect]
     Indication: HYPERLIPIDAEMIA
     Route: 048
  3. VOGLIBOSE [Concomitant]
  4. ACTOS [Concomitant]
     Route: 048

REACTIONS (1)
  - RHABDOMYOLYSIS [None]
